FAERS Safety Report 20247192 (Version 4)
Quarter: 2022Q1

REPORT INFORMATION
  Report Type: Spontaneous
  Country: ES (occurrence: ES)
  Receive Date: 20211229
  Receipt Date: 20220113
  Transmission Date: 20220423
  Serious: Yes (Life-Threatening, Hospitalization, Other)
  Sender: FDA-Public Use
  Company Number: None

PATIENT
  Age: 69 Year
  Sex: Male

DRUGS (11)
  1. OMEPRAZOLE [Suspect]
     Active Substance: OMEPRAZOLE
     Indication: Product used for unknown indication
     Dosage: 20 MILLIGRAM, TOTAL
     Route: 048
     Dates: start: 20211116, end: 20211116
  2. METAMIZOLE MAGNESIUM [Suspect]
     Active Substance: METAMIZOLE MAGNESIUM
     Indication: Analgesic therapy
     Dosage: (575 MG HARD CAPSULES)
     Route: 048
     Dates: start: 20211116, end: 20211116
  3. AMOXICILLIN [Suspect]
     Active Substance: AMOXICILLIN
     Indication: Infection
     Dosage: 750 MILLIGRAM, Q8H
     Dates: start: 20211116, end: 20211116
  4. AMOXICILLIN [Suspect]
     Active Substance: AMOXICILLIN
     Dosage: 2250 MILLIGRAM, Q8H (2250 MG, TID (1 IN 8HOUR))
     Dates: start: 20211116, end: 20211116
  5. METAMIZOLE SODIUM [Suspect]
     Active Substance: METAMIZOLE SODIUM
     Indication: Analgesic therapy
     Dosage: 575 MILLIGRAM, QD (575 MG)
     Route: 048
     Dates: start: 20211116, end: 20211116
  6. SIMVASTATIN [Concomitant]
     Active Substance: SIMVASTATIN
     Indication: Product used for unknown indication
     Dosage: 10 MILLIGRAM, QD ((10 MILLIGRAM(S) ),1 IN 1DAY)
  7. OLODATEROL HYDROCHLORIDE\TIOTROPIUM BROMIDE MONOHYDRATE [Concomitant]
     Active Substance: OLODATEROL HYDROCHLORIDE\TIOTROPIUM BROMIDE MONOHYDRATE
     Dosage: (1 IN 1DAY) QD
  8. OLODATEROL HYDROCHLORIDE\TIOTROPIUM BROMIDE MONOHYDRATE [Concomitant]
     Active Substance: OLODATEROL HYDROCHLORIDE\TIOTROPIUM BROMIDE MONOHYDRATE
     Dosage: QD (UNK, DAILY, IN THE MORNING )
  9. OMEPRAZOLE [Concomitant]
     Active Substance: OMEPRAZOLE
     Dosage: 20 MILLIGRAM (20 MG, 1 TOTAL )
  10. ENALAPRIL\HYDROCHLOROTHIAZIDE [Concomitant]
     Active Substance: ENALAPRIL\HYDROCHLOROTHIAZIDE
     Indication: Product used for unknown indication
     Dosage: (1 IN 1DAY  ),QD
  11. ENALAPRIL\HYDROCHLOROTHIAZIDE [Concomitant]
     Active Substance: ENALAPRIL\HYDROCHLOROTHIAZIDE
     Dosage: (20 MG/12.5 MG, IN THE MORNING  )

REACTIONS (9)
  - Eyelid oedema [Recovered/Resolved]
  - Wheezing [Recovered/Resolved]
  - Lip oedema [Recovered/Resolved]
  - Respiratory distress [Recovered/Resolved]
  - Anaphylactic shock [Recovered/Resolved]
  - Pruritus [Recovered/Resolved]
  - Rash [Recovered/Resolved]
  - Abdominal pain [Recovered/Resolved]
  - Acute kidney injury [Recovered/Resolved]

NARRATIVE: CASE EVENT DATE: 20211116
